FAERS Safety Report 8500379-5 (Version None)
Quarter: 2012Q3

REPORT INFORMATION
  Report Type: 
  Country: None (occurrence: None)
  Receive Date: 20120703
  Receipt Date: 20120703
  Transmission Date: 20120928
  Serious: Yes (Other)
  Sender: FDA-Public Use
  Company Number: None

PATIENT
  Age: 37 Year
  Sex: Female
  Weight: 96.1626 kg

DRUGS (2)
  1. ESCITALOPRAM [Suspect]
     Indication: PREMENSTRUAL SYNDROME
     Dosage: 25 MG 1/DAY PO
     Route: 048
     Dates: start: 20120415, end: 20120625
  2. ESCITALOPRAM [Suspect]
     Indication: GENERALISED ANXIETY DISORDER
     Dosage: 25 MG 1/DAY PO
     Route: 048
     Dates: start: 20120415, end: 20120625

REACTIONS (7)
  - UNEVALUABLE EVENT [None]
  - INSOMNIA [None]
  - PANIC ATTACK [None]
  - VISION BLURRED [None]
  - NAUSEA [None]
  - PRODUCT SUBSTITUTION ISSUE [None]
  - MOOD SWINGS [None]
